FAERS Safety Report 5792355-0 (Version None)
Quarter: 2008Q2

REPORT INFORMATION
  Report Type: 
  Country: None (occurrence: None)
  Receive Date: 20080626
  Receipt Date: 20080410
  Transmission Date: 20081010
  Serious: No
  Sender: FDA-Public Use
  Company Number: US-ASTRAZENECA-2008UW07407

PATIENT
  Age: 8 Year
  Sex: Male
  Weight: 22.7 kg

DRUGS (2)
  1. PULMICORT RESPULES [Suspect]
     Indication: ASTHMA
     Route: 055
     Dates: start: 20070101
  2. SINGULAIR [Concomitant]

REACTIONS (2)
  - AGGRESSION [None]
  - EYE MOVEMENT DISORDER [None]
